FAERS Safety Report 5179701-6 (Version None)
Quarter: 2006Q4

REPORT INFORMATION
  Report Type: 
  Country: None (occurrence: None)
  Receive Date: 20061211
  Receipt Date: 20061130
  Transmission Date: 20070319
  Serious: Yes (Disabling, Other)
  Sender: FDA-Public Use
  Company Number: 2006148463

PATIENT
  Age: 77 Year
  Sex: Female
  Weight: 48.0813 kg

DRUGS (11)
  1. LIPITOR [Suspect]
     Indication: BLOOD CHOLESTEROL INCREASED
     Dosage: 80 MG (80 MG, 1 IN 1 D)
  2. ALL OTHER THERAPEUTIC PRODUCTS (ALL OTHER THERAPEUTIC PRODUCTS) [Concomitant]
  3. IMDUR [Concomitant]
  4. HUMULIN 70/30 [Concomitant]
  5. LASIX [Concomitant]
  6. DIOVAN [Concomitant]
  7. PLAVIX [Concomitant]
  8. PROTONIX [Concomitant]
  9. COREG [Concomitant]
  10. POLYETHYLENE GLYCOL [Concomitant]
  11. TERIPARATIDE (TERIPARATIDE) [Concomitant]

REACTIONS (7)
  - ASTHENIA [None]
  - DYSPHAGIA [None]
  - GAIT DISTURBANCE [None]
  - LETHARGY [None]
  - MOBILITY DECREASED [None]
  - MUSCULAR WEAKNESS [None]
  - TREATMENT NONCOMPLIANCE [None]
